FAERS Safety Report 10433379 (Version 3)
Quarter: 2014Q4

REPORT INFORMATION
  Report Type: Spontaneous
  Country: AU (occurrence: AU)
  Receive Date: 20140905
  Receipt Date: 20141120
  Transmission Date: 20150528
  Serious: Yes (Hospitalization, Other)
  Sender: FDA-Public Use
  Company Number: AU-009507513-1408AUS015972

PATIENT
  Age: 44 Year
  Sex: Male

DRUGS (2)
  1. CELESTONE CHRONODOSE [Suspect]
     Active Substance: BETAMETHASONE ACETATE\BETAMETHASONE SODIUM PHOSPHATE
     Indication: CERVICAL RADICULOPATHY
     Dosage: 1 ML, ONCE
     Route: 053
     Dates: start: 20140822
  2. BUPIVACAINE HYDROCHLORIDE. [Concomitant]
     Active Substance: BUPIVACAINE HYDROCHLORIDE
     Indication: CERVICAL RADICULOPATHY
     Dosage: 1 ML, UNK
     Route: 053
     Dates: start: 20140822

REACTIONS (4)
  - Spinal cord oedema [Not Recovered/Not Resolved]
  - Hemiplegia [Not Recovered/Not Resolved]
  - Monoplegia [Not Recovered/Not Resolved]
  - Sensory loss [Unknown]

NARRATIVE: CASE EVENT DATE: 20140822
